FAERS Safety Report 8374184-7 (Version None)
Quarter: 2012Q2

REPORT INFORMATION
  Report Type: 
  Country: None (occurrence: None)
  Receive Date: 20120521
  Receipt Date: 20120514
  Transmission Date: 20120825
  Serious: Yes (Hospitalization)
  Sender: FDA-Public Use
  Company Number: ES-GLAXOSMITHKLINE-B0802462A

PATIENT
  Age: 48 Year
  Sex: Male

DRUGS (1)
  1. LAMICTAL [Suspect]
     Indication: DEPRESSION
     Route: 048
     Dates: start: 20120401

REACTIONS (5)
  - RASH [None]
  - FEELING ABNORMAL [None]
  - EOSINOPHILIA [None]
  - PYREXIA [None]
  - HYPERTRANSAMINASAEMIA [None]
